FAERS Safety Report 5336920-3 (Version None)
Quarter: 2007Q2

REPORT INFORMATION
  Report Type: 
  Country: None (occurrence: None)
  Receive Date: 20070529
  Receipt Date: 20070518
  Transmission Date: 20071010
  Serious: Yes (Other)
  Sender: FDA-Public Use
  Company Number: BE-JNJFOC-20070505647

PATIENT
  Age: 62 Year
  Sex: Male
  Weight: 72 kg

DRUGS (14)
  1. FENTANYL [Suspect]
     Indication: ANALGESIC EFFECT
  2. REMIFENTANIL [Suspect]
     Indication: ANAESTHESIA
  3. MORPHINE [Suspect]
     Indication: ABDOMINAL PAIN UPPER
     Route: 042
  4. CISATRACRIUM [Concomitant]
     Indication: ANAESTHESIA
  5. AMLODIPINE [Concomitant]
  6. CARVEDILOL [Concomitant]
  7. LORAZEPAM [Concomitant]
  8. AMITRIPTYLINE HCL [Concomitant]
  9. METAFORMIN [Concomitant]
  10. ATORVASTATIN [Concomitant]
  11. TRAMADOL HCL [Concomitant]
     Indication: ANALGESIC EFFECT
  12. PARACETAMOL [Concomitant]
  13. PROPARACETAMOL [Concomitant]
  14. PIRITRAMIDE [Concomitant]

REACTIONS (1)
  - HYPERAESTHESIA [None]
